FAERS Safety Report 9698017 (Version 1)
Quarter: 2013Q4

REPORT INFORMATION
  Report Type: Spontaneous
  Country: NL (occurrence: None)
  Receive Date: 20131118
  Receipt Date: 20131118
  Transmission Date: 20140711
  Serious: Yes (Hospitalization)
  Sender: FDA-Public Use
  Company Number: AG-2013-015490

PATIENT
  Age: 67 Year
  Sex: Male
  Weight: 77 kg

DRUGS (1)
  1. CHLORAMBUCIL [Suspect]
     Indication: CHRONIC LYMPHOCYTIC LEUKAEMIA
     Dosage: UNKNOWN (10 MG/M2, DAYS 1-7 EVERY 28 DAYS), ORAL
     Route: 048
     Dates: start: 20110224, end: 20111026

REACTIONS (7)
  - Oedema [None]
  - Dyspnoea [None]
  - Weight increased [None]
  - Wheezing [None]
  - Haemoglobin decreased [None]
  - Chronic lymphocytic leukaemia [None]
  - Chronic lymphocytic leukaemia transformation [None]
